FAERS Safety Report 7006478-1 (Version None)
Quarter: 2010Q3

REPORT INFORMATION
  Report Type: 
  Country: None (occurrence: None)
  Receive Date: 20100910
  Receipt Date: 20100827
  Transmission Date: 20110219
  Serious: Yes (Other)
  Sender: FDA-Public Use
  Company Number: 2010SP037107

PATIENT
  Age: 16 Year
  Sex: Female

DRUGS (7)
  1. IMPLANON [Suspect]
     Indication: CONTRACEPTION
     Dates: start: 20091012, end: 20100101
  2. PROZAC [Concomitant]
  3. EQUASYM [Concomitant]
  4. RITALIN [Concomitant]
  5. FLUOXETINE [Concomitant]
  6. RISPERIDONE [Concomitant]
  7. CIRCADIN [Concomitant]

REACTIONS (11)
  - ANXIETY [None]
  - DEATH OF RELATIVE [None]
  - DEPRESSED MOOD [None]
  - DEPRESSION [None]
  - DRUG INEFFECTIVE [None]
  - DYSMENORRHOEA [None]
  - METRORRHAGIA [None]
  - MOOD ALTERED [None]
  - SELF-INJURIOUS IDEATION [None]
  - SLEEP DISORDER [None]
  - SUICIDAL IDEATION [None]
